FAERS Safety Report 8303103-4 (Version None)
Quarter: 2012Q2

REPORT INFORMATION
  Report Type: 
  Country: None (occurrence: None)
  Receive Date: 20120423
  Receipt Date: 20120410
  Transmission Date: 20120825
  Serious: Yes (Other)
  Sender: FDA-Public Use
  Company Number: DE-AMGEN-DEUSP2012023465

PATIENT
  Age: 63 Year
  Sex: Male
  Weight: 96 kg

DRUGS (3)
  1. METHOTREXATE [Concomitant]
     Indication: PSORIATIC ARTHROPATHY
     Dosage: 10 MG, WEEKLY
     Dates: start: 20110701
  2. ENBREL [Suspect]
     Indication: PSORIATIC ARTHROPATHY
     Dosage: 50 MG, WEEKLY
     Route: 058
     Dates: start: 20110701, end: 20111201
  3. FOLIC ACID [Concomitant]
     Indication: PSORIATIC ARTHROPATHY
     Dosage: 10 MG, WEEKLY
     Route: 048
     Dates: start: 20110701

REACTIONS (1)
  - THYROID CANCER [None]
